APPROVED DRUG PRODUCT: PHENTERMINE HYDROCHLORIDE
Active Ingredient: PHENTERMINE HYDROCHLORIDE
Strength: 37.5MG
Dosage Form/Route: TABLET;ORAL
Application: A040402 | Product #001
Applicant: ABLE LABORATORIES INC
Approved: Aug 30, 2001 | RLD: No | RS: No | Type: DISCN